FAERS Safety Report 10038553 (Version 1)
Quarter: 2014Q1

REPORT INFORMATION
  Report Type: Spontaneous
  Country: US (occurrence: None)
  Receive Date: 20140306
  Receipt Date: 20140306
  Transmission Date: 20141002
  Serious: Yes (Disabling, Other)
  Sender: FDA-Public Use
  Company Number: 163-21880-13064497

PATIENT
  Age: 51 Year
  Sex: Male
  Weight: 128.2 kg

DRUGS (3)
  1. REVLIMID (LENALIDOMIDE) (25 MILLIGRAM, CAPSULES) [Suspect]
     Indication: PLASMA CELL MYELOMA
     Dosage: 18.75 MG, 21 IN 28 D, PO
     Route: 048
     Dates: start: 201011
  2. VELCADE(BORTEZOMIB) [Concomitant]
  3. CYCLOPHOSPHAMIDE(CYCLOPHOSPHAMIDE) [Concomitant]

REACTIONS (2)
  - Drug ineffective [None]
  - Plasma cell myeloma [None]
